FAERS Safety Report 6100951-6 (Version None)
Quarter: 2009Q1

REPORT INFORMATION
  Report Type: 
  Country: None (occurrence: None)
  Receive Date: 20090225
  Receipt Date: 20090213
  Transmission Date: 20090719
  Serious: No
  Sender: FDA-Public Use
  Company Number: B0559972A

PATIENT
  Age: 33 Year
  Sex: Female
  Weight: 80.831 kg

DRUGS (12)
  1. ASPIRIN [Suspect]
     Indication: ANTIPHOSPHOLIPID SYNDROME
  2. AZATHIOPRINE [Suspect]
     Indication: IDIOPATHIC THROMBOCYTOPENIC PURPURA
  3. RANITIDINE HYDROCHLORIDE [Suspect]
     Dosage: 50 MG INTRAVENOUS
     Route: 042
  4. METOCLOPRAMIDE [Suspect]
     Dosage: 10 MG INTRAVENOUS
     Route: 042
  5. SUCCINYLCHOLINE CHLORIDE [Suspect]
     Dosage: 150 MG
  6. DALTEPARIN SODIUM [Suspect]
     Indication: ANTIPHOSPHOLIPID SYNDROME
  7. IMMUNE GLOBULIN INTRAVENOUS (HUMAN) [Suspect]
     Dosage: INTRAVENOUS
     Route: 042
  8. PROTAMINE SULPHATE (FORMULATION UNKNOWN) (PROTAMINE SULFATE) [Suspect]
     Dosage: 50 MG
  9. THIOPENTAL SODIUM [Suspect]
     Dosage: 500 MG
  10. ALFENTANIL [Suspect]
     Dosage: 1 MG
  11. ISOFLURANE+NITR.OX+OXYGEN (FORMULATION UNKNOWN) (ISOFLURANE+NITR.OX+OX [Suspect]
  12. SODIUM CITRATE [Suspect]

REACTIONS (15)
  - ACTIVATED PARTIAL THROMBOPLASTIN TIME PROLONGED [None]
  - BLOOD PRESSURE DIASTOLIC DECREASED [None]
  - CAESAREAN SECTION [None]
  - DRUG EXPOSURE DURING PREGNANCY [None]
  - FALL [None]
  - HAEMOGLOBIN DECREASED [None]
  - HEART RATE INCREASED [None]
  - HYPOCOAGULABLE STATE [None]
  - IDIOPATHIC THROMBOCYTOPENIC PURPURA [None]
  - NO THERAPEUTIC RESPONSE [None]
  - PREMATURE LABOUR [None]
  - PREMATURE RUPTURE OF MEMBRANES [None]
  - THROMBOTIC STROKE [None]
  - TRANSIENT ISCHAEMIC ATTACK [None]
  - TRANSVERSE PRESENTATION [None]
